FAERS Safety Report 6641271-0 (Version None)
Quarter: 2010Q1

REPORT INFORMATION
  Report Type: 
  Country: None (occurrence: None)
  Receive Date: 20100303
  Receipt Date: 20090429
  Transmission Date: 20100710
  Serious: No
  Sender: FDA-Public Use
  Company Number: 286740

PATIENT
  Age: 56 Year
  Sex: Female

DRUGS (1)
  1. NOVOLIN 70/30 [Suspect]
     Indication: INSULIN-REQUIRING TYPE 2 DIABETES MELLITUS
     Dosage: SUBCUTANEOUS
     Route: 058
     Dates: start: 20090401

REACTIONS (2)
  - VISUAL IMPAIRMENT [None]
  - WEIGHT INCREASED [None]
